FAERS Safety Report 10985134 (Version 1)
Quarter: 2015Q2

REPORT INFORMATION
  Report Type: Spontaneous
  Country: JP (occurrence: JP)
  Receive Date: 20150404
  Receipt Date: 20150404
  Transmission Date: 20150821
  Serious: Yes (Other)
  Sender: FDA-Public Use
  Company Number: JP-ACCORD-029674

PATIENT
  Age: 59 Year
  Sex: Male

DRUGS (6)
  1. MYCOPHENOLIC ACID. [Suspect]
     Active Substance: MYCOPHENOLIC ACID
     Indication: LIVER TRANSPLANT
     Dosage: RECEIVED INCREASED?DOSES OF MMF.
  2. BASILIXIMAB [Suspect]
     Active Substance: BASILIXIMAB
     Indication: TRANSPLANT REJECTION
     Dosage: TWO DOSES
  3. EVEROLIMUS [Suspect]
     Active Substance: EVEROLIMUS
     Indication: LIVER TRANSPLANT
  4. PREDNISOLONE. [Suspect]
     Active Substance: PREDNISOLONE
     Indication: LIVER TRANSPLANT
  5. CICLOSPORIN [Suspect]
     Active Substance: CYCLOSPORINE
     Indication: LIVER TRANSPLANT
     Dosage: CSA DOSE ADJUSTED TO MAINTAIN A TARGET LEVEL IN BLOOD OF 150-200 NG/ML
  6. TACROLIMUS. [Suspect]
     Active Substance: TACROLIMUS
     Indication: LIVER TRANSPLANT
     Dosage: DOSE INCREASED TO MAINTAIN WHOLE-BLOOD CONCENTRATION OF 5-10 NG/ML.

REACTIONS (5)
  - Hepatic failure [Unknown]
  - Thrombocytopenia [Unknown]
  - Venoocclusive liver disease [Unknown]
  - Liver transplant rejection [Unknown]
  - Renal failure [Unknown]
